FAERS Safety Report 9519950 (Version 1)
Quarter: 2013Q1

REPORT INFORMATION
  Report Type: Spontaneous
  Country: US (occurrence: None)
  Receive Date: 20130305
  Receipt Date: 20130305
  Transmission Date: 20140127
  Serious: Yes (Hospitalization)
  Sender: FDA-Public Use
  Company Number: 163-21880-12092509

PATIENT
  Age: 69 Year
  Sex: Female
  Weight: 66.23 kg

DRUGS (8)
  1. REVLIMID (LENALIDOMIDE) (25 MILLIGRAM, CAPSULES) [Suspect]
     Indication: PLASMA CELL MYELOMA
     Dosage: 25 MG, 21 IN 21 D, PO
     Route: 048
     Dates: start: 201208
  2. MORPHINE SULFATE (MORPHINE SULFATE) (UNKNOWN) [Concomitant]
  3. HYDROMORPHONE (HYDROMORPHONE) (UNKNOWN) (HYDROMORPHONE) [Concomitant]
  4. ASPIRIN (ACETYLSALICYLIC ACID) (UNKNOWN) (ACETYLSALICYLIC ACID) [Concomitant]
  5. COMPAZINE (PROCHLORPERAZINE EDISYLATE) (UNKNOWN) [Concomitant]
  6. FUROSEMIDE (FUROSEMIDE) (UNKNOWN) [Concomitant]
  7. ZOPIDEM (ZOLPIDEM TARTRATE) (UNKNOWN) [Concomitant]
  8. MIRALAX (MACROGOL) (UNKNOWN) [Concomitant]

REACTIONS (7)
  - Plasma cell myeloma [None]
  - Spinal disorder [None]
  - Back pain [None]
  - Vomiting [None]
  - Nausea [None]
  - Drug dose omission [None]
  - Hypersomnia [None]
